FAERS Safety Report 10018233 (Version 1)
Quarter: 2014Q1

REPORT INFORMATION
  Report Type: Spontaneous
  Country: US (occurrence: US)
  Receive Date: 20140318
  Receipt Date: 20140318
  Transmission Date: 20141002
  Serious: No
  Sender: FDA-Public Use
  Company Number: US-BRISTOL-MYERS SQUIBB COMPANY-19441757

PATIENT
  Sex: 0

DRUGS (3)
  1. ERBITUX [Suspect]
     Indication: COLORECTAL CANCER METASTATIC
     Route: 042
     Dates: start: 20130912
  2. BENADRYL [Concomitant]
     Indication: PREMEDICATION
  3. ATIVAN [Concomitant]
     Indication: PREMEDICATION

REACTIONS (4)
  - Rash [Unknown]
  - Pruritus [Unknown]
  - Hypoaesthesia [Unknown]
  - Blood pressure decreased [Unknown]
